FAERS Safety Report 8312324-6 (Version None)
Quarter: 2012Q2

REPORT INFORMATION
  Report Type: 
  Country: None (occurrence: None)
  Receive Date: 20120425
  Receipt Date: 20111117
  Transmission Date: 20120825
  Serious: Yes (Life-Threatening, Hospitalization, Congenital Anomaly, Other)
  Sender: FDA-Public Use
  Company Number: US-PFIZER INC-2012098735

PATIENT
  Sex: Male

DRUGS (17)
  1. OLOPATADINE HCL [Suspect]
     Dosage: UNK
     Route: 064
     Dates: start: 20100325
  2. IBUPROFEN [Suspect]
     Dosage: UNK
     Route: 064
     Dates: start: 20100325
  3. FLEXERIL [Suspect]
     Indication: SCIATIC NERVE INJURY
     Dosage: 10 MG, 3X/DAY
     Route: 064
  4. SUMATRIPTAN SUCCINATE [Suspect]
     Dosage: UNK
     Route: 064
     Dates: start: 20100325
  5. TOPAMAX [Suspect]
     Indication: MIGRAINE
     Dosage: 25 MG TWO TIMES A DAY
     Route: 064
     Dates: start: 20100315, end: 20100415
  6. TOPAMAX [Suspect]
     Dosage: 25 MG IN THE MORNING AND 25 MG AT NIGHT FOR 1 WEEK
     Route: 064
  7. TOPAMAX [Suspect]
     Dosage: 25 MG FOUR TIMES A DAY FOR 1 WEEK
     Route: 064
  8. NITROFURANTOIN [Suspect]
     Dosage: UNK
     Route: 064
  9. MULTI-VITAMINS [Suspect]
     Dosage: UNK
     Route: 064
  10. CETIRIZINE HCL [Suspect]
     Dosage: UNK
     Route: 064
     Dates: start: 20100325
  11. TOPAMAX [Suspect]
     Dosage: 25 MG TWO TIMES A DAY FOR 1 WEEK
     Route: 064
  12. AMOXICILLIN [Suspect]
     Dosage: UNK
     Route: 064
     Dates: start: 20100325
  13. AZITHROMYCIN [Suspect]
     Dosage: UNK
     Route: 064
     Dates: start: 20100325
  14. CHERACOL /USA/ [Suspect]
     Dosage: UNK
     Route: 064
     Dates: start: 20100325
  15. FLUTICASONE PROPIONATE [Suspect]
     Dosage: UNK
     Route: 064
     Dates: start: 20100325
  16. NAPROXEN [Suspect]
     Dosage: UNK
     Route: 064
     Dates: start: 20100325
  17. VICODIN [Suspect]
     Dosage: UNK
     Route: 064
     Dates: start: 20100325

REACTIONS (12)
  - GLAUCOMA [None]
  - DEVELOPMENTAL DELAY [None]
  - PIERRE ROBIN SYNDROME [None]
  - PNEUMONIA [None]
  - CRANIOSYNOSTOSIS [None]
  - DEAFNESS [None]
  - BODY DYSMORPHIC DISORDER [None]
  - MATERNAL EXPOSURE TIMING UNSPECIFIED [None]
  - RESPIRATORY DISORDER [None]
  - EAR INFECTION [None]
  - HYPERBILIRUBINAEMIA [None]
  - CLEFT PALATE [None]
